FAERS Safety Report 18447853 (Version 2)
Quarter: 2020Q4

REPORT INFORMATION
  Report Type: Report from Study
  Country: DE (occurrence: DE)
  Receive Date: 20201101
  Receipt Date: 20201118
  Transmission Date: 20210114
  Serious: Yes (Death)
  Sender: FDA-Public Use
  Company Number: NVSC2020DE293192

PATIENT
  Sex: Female

DRUGS (6)
  1. KISQALI [Suspect]
     Active Substance: RIBOCICLIB
     Indication: BREAST CANCER METASTATIC
     Dosage: 600 MG, QD  (SCHEMA 21 DAYS INTAKE, 7 DAYS PAUSE) (DAILY DOSE)
     Route: 048
     Dates: start: 20191015, end: 20191203
  2. DENOSUMAB [Concomitant]
     Active Substance: DENOSUMAB
     Indication: PRODUCT USED FOR UNKNOWN INDICATION
     Dosage: 120 MG
     Route: 058
     Dates: start: 20200330, end: 20200817
  3. KISQALI [Suspect]
     Active Substance: RIBOCICLIB
     Dosage: 400 MG, QD  (SCHEMA 21 DAYS INTAKE, 7 DAYS PAUSE) (DAILY DOSE)
     Route: 048
     Dates: start: 20191218, end: 20200119
  4. FULVESTRANT. [Suspect]
     Active Substance: FULVESTRANT
     Indication: BREAST CANCER METASTATIC
     Dosage: 500 MG, QD (EVERY 4 WEEKS)
     Route: 030
     Dates: start: 20191015, end: 20200817
  5. KISQALI [Suspect]
     Active Substance: RIBOCICLIB
     Dosage: 400 MG, QD  (SCHEMA 21 DAYS INTAKE, 7 DAYS PAUSE) (DAILY DOSE)
     Route: 048
     Dates: start: 20200205, end: 20200819
  6. KISQALI [Suspect]
     Active Substance: RIBOCICLIB
     Dosage: 600 MG, QD  (SCHEMA 21 DAYS INTAKE, 7 DAYS PAUSE) (DAILY DOSE)
     Route: 048
     Dates: start: 20200120, end: 20200204

REACTIONS (1)
  - Neoplasm [Fatal]

NARRATIVE: CASE EVENT DATE: 20200829
